FAERS Safety Report 20015930 (Version 1)
Quarter: 2021Q4

REPORT INFORMATION
  Report Type: Spontaneous
  Country: US (occurrence: None)
  Receive Date: 20211101
  Receipt Date: 20211101
  Transmission Date: 20220303
  Serious: No
  Sender: FDA-Public Use
  Company Number: None

PATIENT
  Age: 46 Year
  Sex: Female

DRUGS (1)
  1. AFINITOR DISPERZ [Suspect]
     Active Substance: EVEROLIMUS
     Dosage: FREQUENCY : DAILY;?
     Route: 048

REACTIONS (11)
  - Product dose omission issue [None]
  - Confusional state [None]
  - Infection [None]
  - Blood pressure decreased [None]
  - Loss of consciousness [None]
  - Dysphagia [None]
  - Muscular weakness [None]
  - Decreased appetite [None]
  - Weight decreased [None]
  - Diarrhoea [None]
  - Pain in extremity [None]

NARRATIVE: CASE EVENT DATE: 20211011
